FAERS Safety Report 8139481-9 (Version None)
Quarter: 2012Q1

REPORT INFORMATION
  Report Type: 
  Country: None (occurrence: None)
  Receive Date: 20120215
  Receipt Date: 20120214
  Transmission Date: 20120608
  Serious: Yes (Death, Other)
  Sender: FDA-Public Use
  Company Number: ES-PFIZER INC-2012039310

PATIENT
  Age: 38 Year
  Sex: Male

DRUGS (2)
  1. OLANZAPINE [Concomitant]
  2. ZIPRASIDONE HYDROCHLORIDE [Suspect]
     Dosage: UNK
     Route: 030
     Dates: start: 20120210

REACTIONS (2)
  - BRAIN OEDEMA [None]
  - DEATH [None]
